FAERS Safety Report 21044031 (Version 1)
Quarter: 2022Q3

REPORT INFORMATION
  Report Type: Spontaneous
  Country: US (occurrence: None)
  Receive Date: 20220702
  Receipt Date: 20220702
  Transmission Date: 20221026
  Serious: No
  Sender: FDA-Public Use
  Company Number: None

PATIENT
  Age: 58 Year
  Sex: Female
  Weight: 65.25 kg

DRUGS (3)
  1. DEXTROAMPHET SACCHARAT, AMPHET ASPARTATE, DEXTROAMPHET SULFATE AND AMP [Suspect]
     Active Substance: AMPHETAMINE ASPARTATE\AMPHETAMINE SULFATE\DEXTROAMPHETAMINE SACCHARATE\DEXTROAMPHETAMINE SULFATE
     Indication: Attention deficit hyperactivity disorder
     Dosage: FREQUENCY : TWICE A DAY;?
     Route: 048
     Dates: start: 20220601, end: 20220701
  2. WELLBUTRIN [Concomitant]
     Active Substance: BUPROPION HYDROCHLORIDE
  3. AMBIEN [Concomitant]
     Active Substance: ZOLPIDEM TARTRATE

REACTIONS (3)
  - Irritability [None]
  - Insomnia [None]
  - Headache [None]

NARRATIVE: CASE EVENT DATE: 20220601
